FAERS Safety Report 5753848-5 (Version None)
Quarter: 2008Q2

REPORT INFORMATION
  Report Type: 
  Country: None (occurrence: None)
  Receive Date: 20080527
  Receipt Date: 20080426
  Transmission Date: 20081010
  Serious: Yes (Other)
  Sender: FDA-Public Use
  Company Number: 2008AL002990

PATIENT
  Sex: Female

DRUGS (2)
  1. DIAZEPAM TAB [Suspect]
     Indication: NERVOUS SYSTEM DISORDER
     Dosage: 5 MG, BID;
  2. ACETAMINOPHEN [Suspect]
     Indication: ANALGESIA

REACTIONS (8)
  - CONDITION AGGRAVATED [None]
  - FALL [None]
  - HIP FRACTURE [None]
  - MUSCLE SPASMS [None]
  - MUSCLE TWITCHING [None]
  - OSTEOPOROSIS [None]
  - PAIN [None]
  - TREMOR [None]
